FAERS Safety Report 9699154 (Version 1)
Quarter: 2013Q4

REPORT INFORMATION
  Report Type: Spontaneous
  Country: US (occurrence: US)
  Receive Date: 20131120
  Receipt Date: 20131120
  Transmission Date: 20140711
  Serious: No
  Sender: FDA-Public Use
  Company Number: US-GILEAD-2007-0014710

PATIENT
  Sex: Female
  Weight: 90.72 kg

DRUGS (5)
  1. LETAIRIS [Suspect]
     Indication: PULMONARY ARTERIAL HYPERTENSION
     Route: 048
  2. LASIX [Concomitant]
     Route: 048
  3. CADUET [Concomitant]
     Route: 048
  4. SPIRONOLACTONE [Concomitant]
     Route: 048
  5. OXYGEN [Concomitant]
     Dosage: CONTINUOUS
     Route: 045

REACTIONS (3)
  - Local swelling [Unknown]
  - Pain in extremity [Unknown]
  - Rash [Unknown]
